FAERS Safety Report 23989622 (Version 1)
Quarter: 2024Q2

REPORT INFORMATION
  Report Type: Spontaneous
  Country: DE (occurrence: DE)
  Receive Date: 20240619
  Receipt Date: 20240619
  Transmission Date: 20240716
  Serious: Yes (Hospitalization, Other)
  Sender: FDA-Public Use
  Company Number: DE-AMNEAL PHARMACEUTICALS-2024-AMRX-02228

PATIENT
  Age: 38 Year

DRUGS (2)
  1. TESTOSTERONE [Suspect]
     Active Substance: TESTOSTERONE
     Indication: Product used for unknown indication
     Dosage: 250 MILLIGRAM, EVERY 2WK, FOR 6 MONTHS
     Route: 058
  2. TESTOSTERONE [Suspect]
     Active Substance: TESTOSTERONE
     Dosage: 250 MILLIGRAM, EVERY 3WK
     Route: 058

REACTIONS (1)
  - Myocarditis [Recovered/Resolved]
